FAERS Safety Report 5134156-2 (Version None)
Quarter: 2006Q4

REPORT INFORMATION
  Report Type: 
  Country: None (occurrence: None)
  Receive Date: 20061024
  Receipt Date: 20060614
  Transmission Date: 20070319
  Serious: Yes (Other)
  Sender: FDA-Public Use
  Company Number: US-BOEHRINGER INGELHEIM PHARMACEUTICALS, INC.-2006-BP-06742BP

PATIENT
  Sex: Male

DRUGS (1)
  1. FLOMAX [Suspect]
     Indication: PROSTATE EXAMINATION ABNORMAL
     Route: 048

REACTIONS (2)
  - PROSTATE CANCER [None]
  - PROSTATIC SPECIFIC ANTIGEN INCREASED [None]
